FAERS Safety Report 5985057-9 (Version None)
Quarter: 2008Q4

REPORT INFORMATION
  Report Type: 
  Country: None (occurrence: None)
  Receive Date: 20081208
  Receipt Date: 20080313
  Transmission Date: 20090506
  Serious: No
  Sender: FDA-Public Use
  Company Number: US-AMGEN-KDL269331

PATIENT
  Sex: Female

DRUGS (3)
  1. ENBREL [Suspect]
     Indication: RHEUMATOID ARTHRITIS
     Route: 058
     Dates: start: 20070727
  2. ENBREL [Suspect]
     Indication: SJOGREN'S SYNDROME
  3. METHOTREXATE [Concomitant]
     Dates: start: 20061215

REACTIONS (3)
  - DRUG EFFECT DECREASED [None]
  - HEADACHE [None]
  - VIRAL INFECTION [None]
